FAERS Safety Report 9248443 (Version 2)
Quarter: 2014Q1

REPORT INFORMATION
  Report Type: Spontaneous
  Country: US (occurrence: None)
  Receive Date: 20130305
  Receipt Date: 20140306
  Transmission Date: 20141002
  Serious: Yes (Life-Threatening, Other)
  Sender: FDA-Public Use
  Company Number: 163-21880-12092226

PATIENT
  Age: 58 Year
  Sex: Male
  Weight: 104.33 kg

DRUGS (9)
  1. REVLIMID [Suspect]
     Indication: PLASMA CELL MYELOMA
     Dosage: 1 IN 1 D
     Route: 048
     Dates: start: 20060223
  2. ATENOLOL (ATENOLOL) [Concomitant]
  3. CELEXA (CITALOPRAM HYDROBROMIDE) [Concomitant]
  4. FLAXSEED (OTHER ALIMENTARY TRACT AND METABOLISM PROD) [Concomitant]
  5. FUROSEMIDE (FUROSEMIDE) [Concomitant]
  6. NORVASC (AMLODIPINE BESILATE) [Concomitant]
  7. INSULIN [Concomitant]
  8. RITALIN (METHYLPHENIDATE HYDROCHLORIDE) [Concomitant]
  9. OMEPRAZOLE [Concomitant]

REACTIONS (1)
  - Deep vein thrombosis [None]
